FAERS Safety Report 23682659 (Version 1)
Quarter: 2024Q1

REPORT INFORMATION
  Report Type: Spontaneous
  Country: FR (occurrence: FR)
  Receive Date: 20240328
  Receipt Date: 20240328
  Transmission Date: 20240409
  Serious: Yes (Hospitalization)
  Sender: FDA-Public Use
  Company Number: None

PATIENT
  Age: 61 Year
  Sex: Female
  Weight: 75.9 kg

DRUGS (6)
  1. ETOPOSIDE PHOSPHATE [Suspect]
     Active Substance: ETOPOSIDE PHOSPHATE
     Indication: Neuroendocrine carcinoma of the bladder
     Route: 042
     Dates: start: 20231017, end: 20231017
  2. ETOPOSIDE PHOSPHATE [Suspect]
     Active Substance: ETOPOSIDE PHOSPHATE
     Indication: Neuroendocrine carcinoma of the bladder
     Route: 042
     Dates: start: 20231107, end: 20231107
  3. ETOPOSIDE PHOSPHATE [Suspect]
     Active Substance: ETOPOSIDE PHOSPHATE
     Indication: Neuroendocrine carcinoma of the bladder
     Route: 042
     Dates: start: 20231204, end: 20231204
  4. CARBOPLATIN [Suspect]
     Active Substance: CARBOPLATIN
     Indication: Neuroendocrine carcinoma of the bladder
     Route: 042
     Dates: start: 20231017, end: 20231017
  5. CARBOPLATIN [Suspect]
     Active Substance: CARBOPLATIN
     Indication: Neuroendocrine carcinoma of the bladder
     Route: 042
     Dates: start: 20231107, end: 20231107
  6. CARBOPLATIN [Suspect]
     Active Substance: CARBOPLATIN
     Indication: Neuroendocrine carcinoma of the bladder
     Route: 042
     Dates: start: 20231204, end: 20231204

REACTIONS (2)
  - Neuropathy peripheral [Recovering/Resolving]
  - Motor dysfunction [Recovering/Resolving]

NARRATIVE: CASE EVENT DATE: 20231107
